FAERS Safety Report 8560386-3 (Version None)
Quarter: 2012Q3

REPORT INFORMATION
  Report Type: 
  Country: None (occurrence: None)
  Receive Date: 20120802
  Receipt Date: 20120726
  Transmission Date: 20120928
  Serious: Yes (Hospitalization)
  Sender: FDA-Public Use
  Company Number: FI-ABBOTT-12P-055-0960777-00

PATIENT
  Sex: Female

DRUGS (4)
  1. ETANERCEPT [Suspect]
     Indication: ANKYLOSING SPONDYLITIS
     Route: 058
     Dates: start: 20120426, end: 20120523
  2. SULFASALAZINE [Concomitant]
     Indication: ANKYLOSING SPONDYLITIS
     Dosage: GASTRO-RESISTANT TABLET, 2 TABS, 2 TIMES PER DAY
     Route: 048
  3. MOBIC [Concomitant]
     Indication: ANKYLOSING SPONDYLITIS
     Dosage: ONCE DAILY, IF NECESSARY
     Route: 048
  4. HUMIRA [Suspect]
     Indication: ANKYLOSING SPONDYLITIS
     Route: 058
     Dates: start: 20120308, end: 20120403

REACTIONS (5)
  - SENSORY LOSS [None]
  - DIZZINESS POSTURAL [None]
  - DEMYELINATION [None]
  - DIPLOPIA [None]
  - CSF IMMUNOGLOBULIN INCREASED [None]
